FAERS Safety Report 7721207-1 (Version None)
Quarter: 2011Q3

REPORT INFORMATION
  Report Type: 
  Country: None (occurrence: None)
  Receive Date: 20110831
  Receipt Date: 20110819
  Transmission Date: 20111222
  Serious: No
  Sender: FDA-Public Use
  Company Number: US-B.I. PHARMACEUTICALS,INC./RIDGEFIELD-2011-BP-20395BP

PATIENT
  Sex: Female

DRUGS (4)
  1. AGGRENOX [Suspect]
     Indication: CEREBROVASCULAR ACCIDENT PROPHYLAXIS
     Route: 048
     Dates: start: 20110319
  2. NAMENDA [Concomitant]
     Indication: PROPHYLAXIS
     Route: 048
  3. LIPITOR [Concomitant]
     Indication: PROPHYLAXIS
     Route: 048
  4. ARICEPT [Concomitant]
     Indication: PROPHYLAXIS
     Route: 048

REACTIONS (1)
  - RHINORRHOEA [None]
